FAERS Safety Report 9226027 (Version 1)
Quarter: 2013Q1

REPORT INFORMATION
  Report Type: Spontaneous
  Country: US (occurrence: None)
  Receive Date: 20120921
  Receipt Date: 20120921
  Transmission Date: 20140127
  Serious: Yes (Other)
  Sender: FDA-Public Use
  Company Number: WAES1107USA03494

PATIENT
  Age: 79 Year
  Sex: Female
  Weight: 55.79 kg

DRUGS (8)
  1. VYTORIN [Suspect]
     Indication: HYPERLIPIDAEMIA
     Route: 048
     Dates: end: 20110705
  2. DIOVAN HCT [Concomitant]
  3. EFFEXOR [Concomitant]
  4. MEGACE [Concomitant]
  5. NAMENDA [Concomitant]
  6. NEURONTIN [Concomitant]
  7. PROZAC [Concomitant]
  8. FENOFIBRATE [Concomitant]

REACTIONS (1)
  - Rhabdomyolysis [None]
